FAERS Safety Report 21043015 (Version 1)
Quarter: 2022Q3

REPORT INFORMATION
  Report Type: Spontaneous
  Country: IT (occurrence: IT)
  Receive Date: 20220705
  Receipt Date: 20220705
  Transmission Date: 20221026
  Serious: Yes (Death, Life-Threatening, Hospitalization, Other)
  Sender: FDA-Public Use
  Company Number: IT-MLMSERVICE-20220624-3636243-1

PATIENT
  Age: 17 Year
  Sex: Male

DRUGS (8)
  1. METHOTREXATE [Suspect]
     Active Substance: METHOTREXATE
     Indication: T-cell type acute leukaemia
  2. CYTARABINE [Suspect]
     Active Substance: CYTARABINE
     Indication: T-cell type acute leukaemia
  3. FLUDARABINE [Suspect]
     Active Substance: FLUDARABINE PHOSPHATE
     Indication: T-cell type acute leukaemia
  4. DOXORUBICIN [Suspect]
     Active Substance: DOXORUBICIN
     Indication: T-cell type acute leukaemia
  5. MERCAPTOPURINE [Suspect]
     Active Substance: MERCAPTOPURINE
     Indication: T-cell type acute leukaemia
  6. ANAKINRA [Concomitant]
     Active Substance: ANAKINRA
     Indication: Systemic inflammatory response syndrome
  7. FILGRASTIM [Concomitant]
     Active Substance: FILGRASTIM
     Indication: T-cell type acute leukaemia
  8. ANAKINRA [Concomitant]
     Active Substance: ANAKINRA
     Indication: Systemic inflammatory response syndrome

REACTIONS (7)
  - Cystitis haemorrhagic [Fatal]
  - Sepsis [Fatal]
  - Cardiac failure [Fatal]
  - Renal failure [Fatal]
  - Cytomegalovirus hepatitis [Fatal]
  - Cytopenia [Fatal]
  - Venoocclusive liver disease [Fatal]
